FAERS Safety Report 12389260 (Version 1)
Quarter: 2016Q2

REPORT INFORMATION
  Report Type: Spontaneous
  Country: US (occurrence: None)
  Receive Date: 20160519
  Receipt Date: 20160519
  Transmission Date: 20160815
  Serious: Yes (Hospitalization)
  Sender: FDA-Public Use
  Company Number: None

PATIENT
  Age: 84 Year
  Sex: Female
  Weight: 54 kg

DRUGS (8)
  1. PRIMIDONE. [Concomitant]
     Active Substance: PRIMIDONE
  2. ACYCLOVIR. [Concomitant]
     Active Substance: ACYCLOVIR
  3. GABAPENTIN. [Concomitant]
     Active Substance: GABAPENTIN
  4. LISINOPRIL. [Concomitant]
     Active Substance: LISINOPRIL
  5. IMBRUVICA [Suspect]
     Active Substance: IBRUTINIB
     Indication: CHRONIC LYMPHOCYTIC LEUKAEMIA
     Route: 048
  6. PROPRANOLOL [Concomitant]
     Active Substance: PROPRANOLOL\PROPRANOLOL HYDROCHLORIDE
  7. XANAX [Concomitant]
     Active Substance: ALPRAZOLAM
  8. ALLOPURINOL. [Concomitant]
     Active Substance: ALLOPURINOL

REACTIONS (3)
  - Renal failure [None]
  - Hyperkalaemia [None]
  - Hypercalcaemia [None]

NARRATIVE: CASE EVENT DATE: 20160516
